FAERS Safety Report 5818559-6 (Version None)
Quarter: 2008Q3

REPORT INFORMATION
  Report Type: 
  Country: None (occurrence: None)
  Receive Date: 20080718
  Receipt Date: 20080709
  Transmission Date: 20090109
  Serious: Yes (Other)
  Sender: FDA-Public Use
  Company Number: 8034439

PATIENT
  Sex: Male

DRUGS (9)
  1. KEPPRA [Suspect]
     Indication: CONVULSION
     Dosage: 750 MG 2/D PO
     Route: 048
     Dates: end: 20080704
  2. KEPPRA [Suspect]
     Indication: CONVULSION
     Dosage: 1000 MG 2/D
  3. CARBAMAZEPINE [Concomitant]
  4. CATAPRES [Concomitant]
  5. ATIVAN [Concomitant]
  6. BECLOMETHASONE DIPROPIONATE [Concomitant]
  7. SEPTRA [Concomitant]
  8. TOPAMAX [Concomitant]
  9. DILANTIN [Concomitant]

REACTIONS (3)
  - BRAIN NEOPLASM [None]
  - CONDITION AGGRAVATED [None]
  - CONVULSION [None]
